FAERS Safety Report 9152790 (Version 1)
Quarter: 2013Q1

REPORT INFORMATION
  Report Type: Spontaneous
  Country: FR (occurrence: FR)
  Receive Date: 20130115
  Receipt Date: 20130115
  Transmission Date: 20140127
  Serious: Yes (Hospitalization)
  Sender: FDA-Public Use
  Company Number: FR-PFIZER INC-2013014782

PATIENT
  Age: 87 Year
  Sex: Female

DRUGS (5)
  1. CORDARONE [Suspect]
     Indication: ATRIAL FLUTTER
     Dosage: UNK
     Route: 048
     Dates: start: 201205, end: 20121116
  2. PREVISCAN [Concomitant]
  3. DIFFU K [Concomitant]
  4. APROVEL [Concomitant]
  5. LASILIX [Concomitant]

REACTIONS (5)
  - Interstitial lung disease [Recovering/Resolving]
  - Pulmonary embolism [Recovering/Resolving]
  - Renal failure [Recovering/Resolving]
  - Metabolic alkalosis [Recovering/Resolving]
  - Hypokalaemia [Recovering/Resolving]
